FAERS Safety Report 7238865-0 (Version None)
Quarter: 2011Q1

REPORT INFORMATION
  Report Type: 
  Country: None (occurrence: None)
  Receive Date: 20110121
  Receipt Date: 20110111
  Transmission Date: 20110831
  Serious: Yes (Hospitalization, Other)
  Sender: FDA-Public Use
  Company Number: PHHY2010US05146

PATIENT
  Sex: Female
  Weight: 100 kg

DRUGS (14)
  1. ASPIRIN [Concomitant]
     Dosage: 81 MG, QD
     Route: 048
     Dates: end: 20100112
  2. GLIBENCLAMIDE [Concomitant]
     Dosage: 10 MG, QD
     Route: 048
  3. COMBIVENT [Concomitant]
     Dosage: 4 IN ONE DAY
  4. NPLATE [Suspect]
     Dosage: 2 UG/KG
     Route: 058
     Dates: start: 20091216
  5. NPLATE [Suspect]
     Dosage: 2 UG/KG
     Route: 058
     Dates: start: 20091224
  6. CALCIUM [Concomitant]
  7. RANITIDINE [Concomitant]
     Dosage: 150 MG, BID
     Route: 048
  8. NPLATE [Suspect]
     Dosage: 2 UG/KG
     Route: 058
     Dates: start: 20091209
  9. NPLATE [Suspect]
     Dosage: 2 UG/KG
     Route: 058
     Dates: start: 20100106, end: 20100106
  10. LOSARTAN [Concomitant]
     Dosage: 50 MG, QD
     Route: 048
  11. ERGOCALCIFEROL [Concomitant]
     Dosage: 400 IU, QD
  12. NPLATE [Suspect]
     Dosage: 2 UG/KG
     Route: 058
     Dates: start: 20091230
  13. FEMARA [Suspect]
     Dosage: 2.5 MG
     Dates: start: 20070123, end: 20100112
  14. NPLATE [Suspect]
     Indication: IDIOPATHIC THROMBOCYTOPENIC PURPURA
     Dosage: 1 UG/KG
     Route: 058
     Dates: start: 20091204

REACTIONS (16)
  - MARROW HYPERPLASIA [None]
  - CHRONIC OBSTRUCTIVE PULMONARY DISEASE [None]
  - OEDEMA [None]
  - OESOPHAGEAL CANDIDIASIS [None]
  - ATELECTASIS [None]
  - PNEUMONIA [None]
  - HYPERPLASIA [None]
  - PULMONARY EMBOLISM [None]
  - HYPOVOLAEMIA [None]
  - CARDIAC FAILURE CONGESTIVE [None]
  - THROMBOCYTOPENIA [None]
  - THROMBOCYTOPENIC PURPURA [None]
  - DEEP VEIN THROMBOSIS [None]
  - GASTROINTESTINAL HAEMORRHAGE [None]
  - THROMBOCYTOSIS [None]
  - HYPOXIA [None]
